FAERS Safety Report 21118310 (Version 1)
Quarter: 2022Q3

REPORT INFORMATION
  Report Type: Report from Study
  Country: JP (occurrence: JP)
  Receive Date: 20220722
  Receipt Date: 20220722
  Transmission Date: 20221027
  Serious: Yes (Other)
  Sender: FDA-Public Use
  Company Number: JP-TAKEDA-2022TJP067629

PATIENT

DRUGS (1)
  1. VORTIOXETINE [Suspect]
     Active Substance: VORTIOXETINE
     Indication: Major depression
     Dosage: UNK
     Route: 048
     Dates: start: 2021

REACTIONS (13)
  - Pancytopenia [Unknown]
  - Palpitations [Unknown]
  - Abdominal pain upper [Unknown]
  - Therapeutic response decreased [Unknown]
  - Somnolence [Unknown]
  - Headache [Unknown]
  - Nausea [Unknown]
  - Constipation [Unknown]
  - Irritability [Unknown]
  - Diarrhoea [Unknown]
  - Pruritus [Unknown]
  - Insomnia [Unknown]
  - Dizziness [Unknown]
